FAERS Safety Report 9584203 (Version 1)
Quarter: 2013Q4

REPORT INFORMATION
  Report Type: Spontaneous
  Country: US (occurrence: US)
  Receive Date: 20131002
  Receipt Date: 20131002
  Transmission Date: 20140711
  Serious: No
  Sender: FDA-Public Use
  Company Number: US-AMGEN-USASP2013051450

PATIENT
  Age: 54 Year
  Sex: Female
  Weight: 63.49 kg

DRUGS (3)
  1. ENBREL [Suspect]
     Indication: RHEUMATOID ARTHRITIS
     Dosage: 50 MG, QWK
     Route: 058
  2. LISINOPRIL AND HYDROCHLOROTHIAZIDE [Concomitant]
     Dosage: 10 (10-12.5 ) UNK, UNK
  3. ETODOLAC [Concomitant]
     Dosage: 200 MG, UNK

REACTIONS (1)
  - Nasopharyngitis [Recovered/Resolved]
